FAERS Safety Report 4620669-6 (Version None)
Quarter: 2005Q1

REPORT INFORMATION
  Report Type: 
  Country: None (occurrence: None)
  Receive Date: 20050321
  Receipt Date: 20050302
  Transmission Date: 20050727
  Serious: Yes (Hospitalization)
  Sender: FDA-Public Use
  Company Number: 602070

PATIENT
  Sex: Female

DRUGS (4)
  1. GAMMAGARD S/D [Suspect]
     Dosage: INTRAVENOUS
     Route: 042
  2. BENADRYL [Concomitant]
  3. SOLU-CORTEF [Concomitant]
  4. ATIVAN [Concomitant]

REACTIONS (10)
  - ARTHRALGIA [None]
  - BURSITIS [None]
  - COMA [None]
  - CONVULSION [None]
  - DYSSTASIA [None]
  - HYPOTONIA [None]
  - INFUSION RELATED REACTION [None]
  - PAIN IN EXTREMITY [None]
  - SKIN WARM [None]
  - VOMITING [None]
